FAERS Safety Report 7717370-9 (Version None)
Quarter: 2011Q3

REPORT INFORMATION
  Report Type: 
  Country: None (occurrence: None)
  Receive Date: 20110830
  Receipt Date: 20110823
  Transmission Date: 20111222
  Serious: Yes (Other)
  Sender: FDA-Public Use
  Company Number: US-JNJFOC-20110710809

PATIENT
  Sex: Female
  Weight: 57.61 kg

DRUGS (9)
  1. REMICADE [Suspect]
     Route: 042
     Dates: start: 20040101
  2. SOLU-CORTEF [Concomitant]
     Indication: PREMEDICATION
     Route: 042
  3. BENADRYL [Concomitant]
     Indication: PREMEDICATION
  4. REMICADE [Suspect]
     Route: 042
     Dates: start: 20040101
  5. ZYRTEC [Concomitant]
     Indication: PREMEDICATION
  6. REMICADE [Suspect]
     Indication: CROHN'S DISEASE
     Dosage: INFUSION #17
     Route: 042
     Dates: start: 20061003
  7. REMICADE [Suspect]
     Dosage: INFUSION #17
     Route: 042
     Dates: start: 20061003
  8. METRONIDAZOLE [Concomitant]
     Indication: PRODUCT USED FOR UNKNOWN INDICATION
  9. TYLENOL-500 [Concomitant]
     Indication: PREMEDICATION

REACTIONS (8)
  - ANAPHYLACTIC SHOCK [None]
  - DRUG INEFFECTIVE [None]
  - MUSCLE SPASMS [None]
  - INTESTINAL FISTULA [None]
  - FAECAL INCONTINENCE [None]
  - COLON NEOPLASM [None]
  - INFUSION RELATED REACTION [None]
  - ENTEROCOLITIS INFECTIOUS [None]
